FAERS Safety Report 7537179-9 (Version None)
Quarter: 2011Q2

REPORT INFORMATION
  Report Type: 
  Country: None (occurrence: None)
  Receive Date: 20110609
  Receipt Date: 20110531
  Transmission Date: 20111010
  Serious: Yes (Hospitalization)
  Sender: FDA-Public Use
  Company Number: US-ASTRAZENECA-2011SE30351

PATIENT
  Age: 52 Year
  Sex: Female

DRUGS (4)
  1. NEXIUM [Suspect]
     Route: 048
     Dates: start: 20110101, end: 20110501
  2. NEXIUM [Suspect]
     Indication: HIATUS HERNIA
     Route: 048
     Dates: start: 20100101
  3. NEXIUM IV [Suspect]
     Indication: HIATUS HERNIA
     Route: 042
  4. PRILOSEC [Suspect]
     Route: 048

REACTIONS (9)
  - DRUG DOSE OMISSION [None]
  - DRUG INEFFECTIVE [None]
  - DECREASED APPETITE [None]
  - DYSPEPSIA [None]
  - GASTRIC DISORDER [None]
  - GASTRITIS [None]
  - HIATUS HERNIA [None]
  - ABDOMINAL DISCOMFORT [None]
  - ABDOMINAL PAIN UPPER [None]
